FAERS Safety Report 4818779-3 (Version None)
Quarter: 2005Q4

REPORT INFORMATION
  Report Type: 
  Country: None (occurrence: None)
  Receive Date: 20051101
  Receipt Date: 20051030
  Transmission Date: 20060501
  Serious: Yes (Other)
  Sender: FDA-Public Use
  Company Number: 217535

PATIENT
  Age: 51 Year
  Sex: Female
  Weight: 98.4 kg

DRUGS (3)
  1. RAPTIVA [Suspect]
     Indication: PSORIASIS
     Dosage: 1 MG/KG, 1 WEEK, SUBCUTANEOUS
     Route: 058
     Dates: start: 20041214, end: 20050902
  2. LORAZEPAM [Concomitant]
  3. EFFEXOR [Concomitant]

REACTIONS (1)
  - ANTINUCLEAR ANTIBODY POSITIVE [None]
